FAERS Safety Report 13015459 (Version 2)
Quarter: 2017Q1

REPORT INFORMATION
  Report Type: Spontaneous
  Country: JP (occurrence: JP)
  Receive Date: 20161211
  Receipt Date: 20170123
  Transmission Date: 20170428
  Serious: Yes (Death)
  Sender: FDA-Public Use
  Company Number: JP-TAKEDA-2016TJP026777AA

PATIENT
  Age: 10 Decade
  Sex: Female

DRUGS (1)
  1. NESINA [Suspect]
     Active Substance: ALOGLIPTIN BENZOATE
     Indication: DIABETES MELLITUS
     Dosage: UNK
     Route: 048
     Dates: start: 2012, end: 2015

REACTIONS (2)
  - Blister [Fatal]
  - Pemphigoid [Fatal]

NARRATIVE: CASE EVENT DATE: 2015
